FAERS Safety Report 11229995 (Version 2)
Quarter: 2015Q3

REPORT INFORMATION
  Report Type: Report from Study
  Country: CL (occurrence: CL)
  Receive Date: 20150701
  Receipt Date: 20150929
  Transmission Date: 20151125
  Serious: Yes (Disabling, Other)
  Sender: FDA-Public Use
  Company Number: CL-ROCHE-1467903

PATIENT
  Age: 72 Year
  Sex: Male
  Weight: 87 kg

DRUGS (6)
  1. COTRIMOXAZOLE [Concomitant]
     Active Substance: SULFAMETHOXAZOLE\TRIMETHOPRIM
     Indication: PRODUCT USED FOR UNKNOWN INDICATION
     Route: 048
     Dates: start: 2014
  2. LEVOTHYROXINE. [Concomitant]
     Active Substance: LEVOTHYROXINE
     Indication: HYPERTHYROIDISM
     Route: 048
     Dates: start: 2011
  3. LOSARTAN. [Concomitant]
     Active Substance: LOSARTAN
     Indication: HYPERTENSION
     Route: 048
     Dates: start: 1970
  4. MABTHERA [Suspect]
     Active Substance: RITUXIMAB
     Indication: NON-HODGKIN^S LYMPHOMA
     Route: 042
     Dates: start: 20140714
  5. ATORVASTATIN [Concomitant]
     Active Substance: ATORVASTATIN
     Indication: HYPERCHOLESTEROLAEMIA
     Route: 048
     Dates: start: 2012
  6. ESCITALOPRAM [Concomitant]
     Active Substance: ESCITALOPRAM OXALATE
     Indication: PRODUCT USED FOR UNKNOWN INDICATION
     Route: 048
     Dates: start: 2011

REACTIONS (9)
  - Abdominal pain upper [Recovered/Resolved]
  - Red blood cell count decreased [Recovered/Resolved]
  - Immune system disorder [Not Recovered/Not Resolved]
  - Splenomegaly [Unknown]
  - White blood cell count decreased [Recovered/Resolved]
  - Unevaluable event [Unknown]
  - Wound [Not Recovered/Not Resolved]
  - Echocardiogram abnormal [Not Recovered/Not Resolved]
  - Lymphocyte count increased [Unknown]

NARRATIVE: CASE EVENT DATE: 20140923
